FAERS Safety Report 18373238 (Version 2)
Quarter: 2020Q4

REPORT INFORMATION
  Report Type: Spontaneous
  Country: US (occurrence: US)
  Receive Date: 20201012
  Receipt Date: 20201028
  Transmission Date: 20210114
  Serious: No
  Sender: FDA-Public Use
  Company Number: US-SA-2020SA252704

PATIENT

DRUGS (2)
  1. AUBAGIO [Suspect]
     Active Substance: TERIFLUNOMIDE
     Route: 065
  2. COLESTID [Suspect]
     Active Substance: COLESTIPOL HYDROCHLORIDE

REACTIONS (2)
  - Diarrhoea [Unknown]
  - Disease progression [Unknown]
